FAERS Safety Report 10566054 (Version 6)
Quarter: 2016Q4

REPORT INFORMATION
  Report Type: Spontaneous
  Country: CA (occurrence: CA)
  Receive Date: 20141105
  Receipt Date: 20161202
  Transmission Date: 20170206
  Serious: Yes (Hospitalization, Other)
  Sender: FDA-Public Use
  Company Number: CA-GLAXOSMITHKLINE-A1041592A

PATIENT
  Age: 31 Year
  Sex: Female
  Weight: 122 kg

DRUGS (7)
  1. HYDROCHLOROTHIAZIDE. [Concomitant]
     Active Substance: HYDROCHLOROTHIAZIDE
     Indication: PRODUCT USED FOR UNKNOWN INDICATION
     Dosage: UNK
     Dates: start: 20140804
  2. BENLYSTA [Suspect]
     Active Substance: BELIMUMAB
     Indication: SYSTEMIC LUPUS ERYTHEMATOSUS
     Dosage: 750 MG, CYC
     Route: 042
     Dates: start: 20130827
  3. OLMETEC [Concomitant]
     Active Substance: OLMESARTAN MEDOXOMIL
     Indication: PRODUCT USED FOR UNKNOWN INDICATION
     Dosage: 20 MG, UNK
     Dates: start: 20140706
  4. BENLYSTA [Suspect]
     Active Substance: BELIMUMAB
     Dosage: 1000 MG, CYC
     Route: 042
  5. BENLYSTA [Suspect]
     Active Substance: BELIMUMAB
     Dosage: 1000 MG, UNK
     Route: 042
     Dates: start: 20160630
  6. BENLYSTA [Suspect]
     Active Substance: BELIMUMAB
     Dosage: 1000 MG, CYC
     Route: 042
  7. LASIX [Concomitant]
     Active Substance: FUROSEMIDE
     Indication: PRODUCT USED FOR UNKNOWN INDICATION
     Dosage: UNK

REACTIONS (13)
  - Systemic lupus erythematosus [Unknown]
  - Pain [Unknown]
  - Migraine [Unknown]
  - Nasopharyngitis [Unknown]
  - Night sweats [Unknown]
  - Drug ineffective [Unknown]
  - Chest pain [Unknown]
  - Burning sensation [Unknown]
  - Exposure during pregnancy [Unknown]
  - Influenza like illness [Unknown]
  - Pyrexia [Unknown]
  - Influenza [Unknown]
  - Bronchitis [Unknown]

NARRATIVE: CASE EVENT DATE: 20141002
